FAERS Safety Report 6773607-4 (Version None)
Quarter: 2010Q2

REPORT INFORMATION
  Report Type: 
  Country: None (occurrence: None)
  Receive Date: 20100614
  Receipt Date: 20100531
  Transmission Date: 20101027
  Serious: Yes (Other)
  Sender: FDA-Public Use
  Company Number: 2010SP030402

PATIENT
  Sex: Female

DRUGS (2)
  1. DEXAMETHASONE [Suspect]
  2. REMICADE [Suspect]
     Dosage: IV
     Route: 042

REACTIONS (4)
  - CYANOSIS [None]
  - ERYTHEMA [None]
  - INFUSION RELATED REACTION [None]
  - MALAISE [None]
